FAERS Safety Report 8314193-7 (Version None)
Quarter: 2012Q2

REPORT INFORMATION
  Report Type: 
  Country: None (occurrence: None)
  Receive Date: 20120426
  Receipt Date: 20120420
  Transmission Date: 20120825
  Serious: Yes (Hospitalization, Other)
  Sender: FDA-Public Use
  Company Number: US-PFIZER INC-2012083571

PATIENT
  Sex: Female
  Weight: 72.109 kg

DRUGS (32)
  1. ALBUTEROL [Concomitant]
     Dosage: UNK, 2 PUFFS QID PRN
     Dates: start: 20080815
  2. MULTI-VITAMINS [Concomitant]
     Dosage: 1 QD
     Dates: start: 20060815
  3. CALTRATE + D [Concomitant]
     Dosage: UNK, BID
  4. REQUIP [Concomitant]
     Dosage: 0.5 MG, QHS
  5. HYDROCODONE BITARTRATE + ACETAMINOPHEN [Concomitant]
     Dosage: 5/500TID Q4 PRN
  6. METFORMIN [Concomitant]
     Indication: DIABETES MELLITUS
     Dosage: UNK
  7. GLIMEPIRIDE [Concomitant]
     Dosage: 4 MG, 2X/DAY (2MG/ AM 2 QDAY 4 MG)
     Dates: start: 20060815
  8. CALTRATE + D [Concomitant]
     Dosage: D QD
  9. LORAZEPAM [Concomitant]
     Dosage: 1 MG, QHS
  10. WELLBUTRIN SR [Concomitant]
     Dosage: UNK
  11. LYRICA [Suspect]
     Indication: DIABETIC NEUROPATHY
     Dosage: 75 MG, 2X/DAY
     Route: 048
     Dates: start: 20080418
  12. GEMFIBROZIL [Concomitant]
     Dosage: 600 MG, 2X/DAY (1200MG QD)
  13. NISOREX [Concomitant]
     Dosage: 2 EACH NOSTRIL Q DAY PRN
  14. GLUCOPHAGE [Concomitant]
     Dosage: 500 MG, 2X/DAY
     Dates: start: 20081023
  15. MAGNESIUM [Concomitant]
     Dosage: UNK, QD
     Dates: start: 20100201
  16. HYDROCHLOROTHIAZIDE [Concomitant]
     Dosage: 25 MG, 1X/DAY DC
  17. LASIX [Concomitant]
     Dosage: 20 MG, 1, 2X/DAY
     Dates: start: 20080418
  18. PAROXETINE HYDROCHLORIDE [Concomitant]
     Dosage: 20 MG, 1, 1X/DAY
  19. HYDROCODONE BITARTRATE + ACETAMINOPHEN [Concomitant]
     Dosage: 10/500 MG PO Q4 PRN
  20. HYDROCODONE [Concomitant]
     Indication: PAIN
     Dosage: UNK
     Dates: start: 20080725
  21. ZYRTEC [Concomitant]
     Dosage: 10 MG, D 2 PRN
     Dates: start: 20090617
  22. MUCINEX [Concomitant]
     Dosage: UNK, D PRN
     Dates: start: 20090617
  23. FLONASE [Concomitant]
     Dosage: UNK
     Dates: start: 20060815
  24. LORTAB [Concomitant]
     Dosage: QID
  25. LOPID [Concomitant]
     Indication: BLOOD CHOLESTEROL ABNORMAL
     Dosage: 600 MG, 2X/DAY
     Route: 048
     Dates: start: 20060815
  26. CITRACAL [Concomitant]
     Dosage: PLUS BID
     Dates: start: 20060815
  27. PAROXETINE [Concomitant]
     Dosage: 20 MG, 1 1X/DAY
     Dates: start: 20060815
  28. TOPROL-XL [Concomitant]
     Dosage: 100 MG, 1, 1X/DAY
  29. SIMVASTATIN [Concomitant]
     Dosage: 20 MG, 1 QHS
     Dates: start: 20080421
  30. LORAZEPAM [Concomitant]
     Dosage: 1 MG, 2X/DAY
     Dates: start: 20060815
  31. PREMARIN [Concomitant]
     Dosage: 0.625 MG, 1X/DAY
     Dates: start: 20060815
  32. POTASSIUM [Concomitant]
     Dosage: 550 MG, QD

REACTIONS (9)
  - FEELING ABNORMAL [None]
  - MUSCULOSKELETAL DISORDER [None]
  - MALAISE [None]
  - PAIN [None]
  - RESTLESSNESS [None]
  - CRYING [None]
  - DYSPNOEA [None]
  - ARTHRITIS [None]
  - PRURITUS [None]
